FAERS Safety Report 7603576-6 (Version None)
Quarter: 2011Q2

REPORT INFORMATION
  Report Type: 
  Country: None (occurrence: None)
  Receive Date: 20110629
  Receipt Date: 20110621
  Transmission Date: 20111010
  Serious: Yes (Hospitalization)
  Sender: FDA-Public Use
  Company Number: WAES 1106FRA00080

PATIENT
  Age: 56 Year
  Sex: Female

DRUGS (7)
  1. TAB RALTEGRAVIR POTASSIUM [Suspect]
     Indication: HIV INFECTION
     Dosage: 400 MG/BID, PO
     Route: 048
     Dates: start: 20110429
  2. TAB DARUNAVIR [Suspect]
     Indication: HIV INFECTION
     Dosage: 400 MG/BID, PO
     Route: 048
     Dates: start: 20110429
  3. TAB RITONAVIR [Suspect]
     Indication: HIV INFECTION
     Dosage: 100 MG/DAILY, PO
     Route: 048
     Dates: start: 20110429
  4. SULFAMETHOXAZOLE AND TRIMETHOPRIM [Suspect]
     Dosage: 400/80 MG/DAILY, PO
     Route: 048
     Dates: start: 20110414, end: 20110620
  5. ATARAX [Concomitant]
  6. ACETAMINOPHEN [Concomitant]
  7. IMOVANE [Concomitant]

REACTIONS (3)
  - ERYTHEMA MULTIFORME [None]
  - SKIN TOXICITY [None]
  - FACE OEDEMA [None]
